FAERS Safety Report 16454246 (Version 1)
Quarter: 2019Q2

REPORT INFORMATION
  Report Type: Spontaneous
  Country: US (occurrence: US)
  Receive Date: 20190619
  Receipt Date: 20190619
  Transmission Date: 20190711
  Serious: No
  Sender: FDA-Public Use
  Company Number: US-ROCHE-2202758

PATIENT
  Sex: Female

DRUGS (2)
  1. ACTEMRA [Suspect]
     Active Substance: TOCILIZUMAB
     Indication: RHEUMATOID ARTHRITIS
     Dosage: WEEKLY,ONGOING:CURRENT
     Route: 058
     Dates: start: 20180326
  2. ACTEMRA [Suspect]
     Active Substance: TOCILIZUMAB
     Dosage: UNKNOWN
     Route: 058
     Dates: start: 20180327

REACTIONS (2)
  - Depression [Unknown]
  - Drug ineffective [Unknown]
